FAERS Safety Report 12212953 (Version 1)
Quarter: 2016Q1

REPORT INFORMATION
  Report Type: Spontaneous
  Country: US (occurrence: US)
  Receive Date: 20160328
  Receipt Date: 20160328
  Transmission Date: 20160526
  Serious: No
  Sender: FDA-Public Use
  Company Number: US-LUPIN PHARMACEUTICALS INC.-E2B_00004880

PATIENT
  Age: 43 Year
  Sex: Male
  Weight: 99.88 kg

DRUGS (1)
  1. ZOLPIDEM TARTRATE EXTENDED-RELEASE [Suspect]
     Active Substance: ZOLPIDEM TARTRATE
     Indication: SLEEP DISORDER
     Route: 048

REACTIONS (2)
  - Blister [Not Recovered/Not Resolved]
  - Rash [Not Recovered/Not Resolved]
